FAERS Safety Report 16922995 (Version 1)
Quarter: 2019Q4

REPORT INFORMATION
  Report Type: Spontaneous
  Country: DK (occurrence: DK)
  Receive Date: 20191016
  Receipt Date: 20191016
  Transmission Date: 20200122
  Serious: Yes (Hospitalization)
  Sender: FDA-Public Use
  Company Number: DK-TEVA-2019-DK-1121554

PATIENT
  Age: 83 Year
  Sex: Female

DRUGS (13)
  1. ZINKSULFAT [Concomitant]
     Indication: VITAMIN SUPPLEMENTATION
     Dosage: STYRKE: 22 MG ZN2 + 0.34 MMOL.
     Route: 048
     Dates: start: 20190821
  2. METOPROLOL. [Concomitant]
     Active Substance: METOPROLOL
     Indication: CARDIAC FAILURE
     Dosage: STYRKE: 50 MG.
     Route: 048
  3. CLARITHROMYCIN. [Suspect]
     Active Substance: CLARITHROMYCIN
     Indication: PNEUMONIA
     Dosage: 1000 MG 1 DAYS
     Route: 048
     Dates: start: 20190823, end: 20190825
  4. LOSARTAN. [Concomitant]
     Active Substance: LOSARTAN
     Indication: HYPERTENSION
     Dosage: STYRKE: 50 MG.
     Route: 048
  5. FLUCONAZOL ^ACCORD^ [Interacting]
     Active Substance: FLUCONAZOLE
     Indication: ORAL FUNGAL INFECTION
     Dosage: STRENGTH: 50 MG 1 DAYS
     Route: 048
     Dates: start: 20190815, end: 20190828
  6. FUROSEMIDE. [Concomitant]
     Active Substance: FUROSEMIDE
     Indication: DIURETIC THERAPY
     Dosage: DOSIS: 2 TABLETTER MORGEN, 1 TABLET MIDDAG. STYRKE: 40 MG.
     Route: 048
     Dates: start: 20170927
  7. MACROGOL [Concomitant]
     Active Substance: POLYETHYLENE GLYCOLS
     Indication: CONSTIPATION
     Dosage: STYRKE: UKENDT.
     Route: 048
     Dates: start: 20190624
  8. PANTOPRAZOLE [Concomitant]
     Active Substance: PANTOPRAZOLE
     Indication: GASTRIC ULCER
     Dosage: STYRKE 40 MG.
     Route: 048
     Dates: start: 20190815
  9. GANFORT [Concomitant]
     Active Substance: BIMATOPROST\TIMOLOL
     Indication: GLAUCOMA
     Dosage: STYRKE: 0.3 + 5 MG/ML.
     Route: 050
     Dates: start: 20120822
  10. PARACETAMOL [Concomitant]
     Active Substance: ACETAMINOPHEN
     Indication: PAIN
     Dosage: STYRKE: 500 MG.
     Route: 048
     Dates: start: 20190430
  11. MAREVAN [Interacting]
     Active Substance: WARFARIN SODIUM
     Indication: ANTICOAGULANT THERAPY
     Dosage: DOSE: BY SCHEDULE, STRENGTH: 2.5 MG
     Route: 048
     Dates: end: 20190912
  12. TRAMADOL. [Concomitant]
     Active Substance: TRAMADOL
     Indication: PAIN
     Dosage: STYRKE: 50 MG.
     Route: 048
  13. POTASSIUM CHLORIDE. [Concomitant]
     Active Substance: POTASSIUM CHLORIDE
     Indication: MINERAL SUPPLEMENTATION
     Dosage: STYRKE: 750 MG.
     Route: 048

REACTIONS (3)
  - Melaena [Recovered/Resolved]
  - Drug interaction [Recovering/Resolving]
  - International normalised ratio increased [Recovering/Resolving]

NARRATIVE: CASE EVENT DATE: 201909
